FAERS Safety Report 12180699 (Version 1)
Quarter: 2016Q1

REPORT INFORMATION
  Report Type: Spontaneous
  Country: US (occurrence: US)
  Receive Date: 20160315
  Receipt Date: 20160315
  Transmission Date: 20160526
  Serious: No
  Sender: FDA-Public Use
  Company Number: US-PFIZER INC-2016119955

PATIENT
  Age: 71 Year
  Sex: Female
  Weight: 118 kg

DRUGS (1)
  1. LEVOTHYROXINE SODIUM. [Suspect]
     Active Substance: LEVOTHYROXINE SODIUM
     Indication: THYROID DISORDER
     Dosage: 200MCG TABLET BY MOUTH ONCE A DAY
     Route: 048

REACTIONS (1)
  - Weight fluctuation [Unknown]
